FAERS Safety Report 8185108-X (Version None)
Quarter: 2012Q1

REPORT INFORMATION
  Report Type: 
  Country: None (occurrence: None)
  Receive Date: 20120305
  Receipt Date: 20120228
  Transmission Date: 20120608
  Serious: No
  Sender: FDA-Public Use
  Company Number: US-PFIZER INC-2012053906

PATIENT
  Sex: Male

DRUGS (2)
  1. SUTENT [Suspect]
     Indication: NEUROENDOCRINE TUMOUR
     Dosage: 37.5 MG, UNK
     Dates: start: 20111021
  2. SUTENT [Suspect]
     Indication: CARCINOID SYNDROME

REACTIONS (3)
  - HEADACHE [None]
  - NAUSEA [None]
  - HYPERTENSION [None]
